FAERS Safety Report 21312708 (Version 5)
Quarter: 2023Q2

REPORT INFORMATION
  Report Type: Report from Study
  Country: US (occurrence: US)
  Receive Date: 20220909
  Receipt Date: 20230413
  Transmission Date: 20230721
  Serious: Yes (Other)
  Sender: FDA-Public Use
  Company Number: US-ASTELLAS-2022US031980

PATIENT
  Age: 82 Year
  Sex: Male

DRUGS (3)
  1. ENZALUTAMIDE [Suspect]
     Active Substance: ENZALUTAMIDE
     Indication: Prostate cancer
     Route: 048
     Dates: start: 20200608, end: 20221212
  2. ENZALUTAMIDE [Suspect]
     Active Substance: ENZALUTAMIDE
     Indication: Metastases to lymph nodes
     Route: 048
     Dates: start: 20230208
  3. ENZALUTAMIDE [Suspect]
     Active Substance: ENZALUTAMIDE
     Indication: Metastases to spine

REACTIONS (4)
  - Hallucination [Unknown]
  - Myocardial infarction [Unknown]
  - Dizziness [Unknown]
  - Product availability issue [Unknown]

NARRATIVE: CASE EVENT DATE: 20220611
